FAERS Safety Report 20893980 (Version 2)
Quarter: 2022Q2

REPORT INFORMATION
  Report Type: Spontaneous
  Country: US (occurrence: US)
  Receive Date: 20220531
  Receipt Date: 20220629
  Transmission Date: 20220721
  Serious: No
  Sender: FDA-Public Use
  Company Number: US-BRISTOL-MYERS SQUIBB COMPANY-2022-021706

PATIENT
  Age: 73 Year
  Sex: Male
  Weight: 86.64 kg

DRUGS (1)
  1. REVLIMID [Suspect]
     Active Substance: LENALIDOMIDE
     Indication: Myelodysplastic syndrome
     Dosage: DAILY ON DAYS 1-14 EVERY 21 DAYS?NEW LOT NUMBER : A3773A WITH EXPIRY DATE 30-SEP-2024
     Route: 048
     Dates: start: 20210101

REACTIONS (2)
  - Hypoaesthesia [Not Recovered/Not Resolved]
  - Fatigue [Not Recovered/Not Resolved]
